FAERS Safety Report 14441986 (Version 3)
Quarter: 2018Q1

REPORT INFORMATION
  Report Type: Spontaneous
  Country: US (occurrence: US)
  Receive Date: 20180125
  Receipt Date: 20180307
  Transmission Date: 20180509
  Serious: Yes (Other)
  Sender: FDA-Public Use
  Company Number: PHEH2018US002309

PATIENT
  Sex: Female
  Weight: 59.86 kg

DRUGS (1)
  1. ESTRADIOL. [Suspect]
     Active Substance: ESTRADIOL
     Indication: MENOPAUSE
     Dosage: UNK
     Route: 065
     Dates: start: 20180117

REACTIONS (4)
  - Gastric disorder [Recovered/Resolved]
  - Hot flush [Recovered/Resolved]
  - Product adhesion issue [Recovered/Resolved]
  - Feeling abnormal [Recovered/Resolved]
